FAERS Safety Report 6065684-3 (Version None)
Quarter: 2009Q1

REPORT INFORMATION
  Report Type: 
  Country: None (occurrence: None)
  Receive Date: 20090130
  Receipt Date: 20090116
  Transmission Date: 20090719
  Serious: Yes (Death, Hospitalization)
  Sender: FDA-Public Use
  Company Number: 2009AL000364

PATIENT
  Sex: Female

DRUGS (7)
  1. DICLOFENAC SODIUM [Suspect]
     Indication: PAIN
     Dosage: UNK UNK PO
     Route: 048
     Dates: start: 20081107
  2. ACETYLSALICYLIC ACID SRT [Concomitant]
  3. ARTHROTEC [Concomitant]
  4. ACETAMINOPHEN [Concomitant]
  5. ADCAL-D3 [Concomitant]
  6. FUROSEMIDE [Concomitant]
  7. DOMPERIDONE [Concomitant]

REACTIONS (2)
  - GASTROINTESTINAL HAEMORRHAGE [None]
  - RENAL FAILURE ACUTE [None]
